FAERS Safety Report 17302185 (Version 1)
Quarter: 2020Q1

REPORT INFORMATION
  Report Type: Report from Study
  Country: None (occurrence: CO)
  Receive Date: 20200122
  Receipt Date: 20200122
  Transmission Date: 20200409
  Serious: Yes (Other)
  Sender: FDA-Public Use
  Company Number: CO-ABBVIE-20K-036-3244212-00

PATIENT
  Age: 70 Year
  Sex: Male

DRUGS (1)
  1. ZEMPLAR [Suspect]
     Active Substance: PARICALCITOL
     Indication: HYPERPARATHYROIDISM SECONDARY
     Dosage: FREQUENCY TEXT - POST DIALYSIS
     Route: 042
     Dates: start: 20170927, end: 20191125

REACTIONS (1)
  - Blood parathyroid hormone abnormal [Recovering/Resolving]

NARRATIVE: CASE EVENT DATE: 201912
